FAERS Safety Report 21343832 (Version 2)
Quarter: 2022Q4

REPORT INFORMATION
  Report Type: Spontaneous
  Country: US (occurrence: US)
  Receive Date: 20220916
  Receipt Date: 20221006
  Transmission Date: 20230113
  Serious: No
  Sender: FDA-Public Use
  Company Number: US-PFIZER INC-202201161817

PATIENT
  Age: 36 Year
  Sex: Female
  Weight: 58.06 kg

DRUGS (7)
  1. LIDOCAINE HYDROCHLORIDE [Suspect]
     Active Substance: LIDOCAINE HYDROCHLORIDE
     Indication: Local anaesthesia
     Dosage: UNK
     Dates: start: 20220805, end: 20220805
  2. LIDOCAINE HYDROCHLORIDE [Suspect]
     Active Substance: LIDOCAINE HYDROCHLORIDE
     Indication: Biopsy skin
  3. ALLEGRA [Concomitant]
     Active Substance: FEXOFENADINE HYDROCHLORIDE
     Indication: Mast cell activation syndrome
     Dosage: 120 MG, 2X/DAY (BEEN ON IT ABOUT 22 MONTHS)
  4. PEPCID AC [Concomitant]
     Active Substance: FAMOTIDINE
     Indication: Mast cell activation syndrome
     Dosage: 20 MG, 2X/DAY (BEEN ON IT ABOUT 22 MONTHS)
  5. MONTELUKAST [Concomitant]
     Active Substance: MONTELUKAST SODIUM
     Dosage: 10 MG
  6. BENADRYL [Concomitant]
     Active Substance: DIPHENHYDRAMINE HYDROCHLORIDE
     Dosage: 25 MG, 1 HOUR BEFORE THE BIOPSY
  7. PREDNISOLONE SODIUM PHOS [Concomitant]
     Dosage: 15 MG, TOOK IT 12 HOURS BEFORE AND 1 HOUR BEFORE BIOPSY

REACTIONS (2)
  - Paraesthesia oral [Recovered/Resolved]
  - Nausea [Recovered/Resolved]

NARRATIVE: CASE EVENT DATE: 20220805
